FAERS Safety Report 8416099 (Version 2)
Quarter: 2013Q1

REPORT INFORMATION
  Report Type: Spontaneous
  Country: US (occurrence: US)
  Receive Date: 20120218
  Receipt Date: 20130119
  Transmission Date: 20140127
  Serious: No
  Sender: FDA-Public Use
  Company Number: US-ALLERGAN-1115435US

PATIENT
  Age: 75 Year
  Sex: Female

DRUGS (8)
  1. BOTOX? [Suspect]
     Indication: MUSCLE SPASMS
     Dosage: 100 UNITS, SINGLE
     Route: 030
     Dates: start: 201111, end: 201111
  2. BOTOX? [Suspect]
     Indication: SPINAL OSTEOARTHRITIS
  3. NORCO [Concomitant]
     Indication: PAIN
  4. RELIFEN [Concomitant]
     Indication: INFLAMMATION
  5. AEROCEF                            /00821801/ [Concomitant]
  6. CENTRUM SILVER                     /01292501/ [Concomitant]
  7. CELEXA                             /00582602/ [Concomitant]
  8. ASPIRIN [Concomitant]

REACTIONS (3)
  - Tremor [Recovered/Resolved]
  - Therapeutic response decreased [Unknown]
  - Dyspnoea [Recovered/Resolved]
